FAERS Safety Report 7344964-5 (Version None)
Quarter: 2011Q1

REPORT INFORMATION
  Report Type: 
  Country: None (occurrence: None)
  Receive Date: 20110310
  Receipt Date: 20110302
  Transmission Date: 20110831
  Serious: Yes (Hospitalization)
  Sender: FDA-Public Use
  Company Number: A0882808A

PATIENT
  Age: 50 Year
  Sex: Male
  Weight: 100 kg

DRUGS (1)
  1. AVANDIA [Suspect]
     Dosage: 8MG PER DAY
     Route: 048
     Dates: end: 20070901

REACTIONS (4)
  - RHABDOMYOLYSIS [None]
  - RENAL FAILURE ACUTE [None]
  - CHEST PAIN [None]
  - SEPTIC SHOCK [None]
